APPROVED DRUG PRODUCT: CAPECITABINE
Active Ingredient: CAPECITABINE
Strength: 500MG
Dosage Form/Route: TABLET;ORAL
Application: A207456 | Product #002 | TE Code: AB
Applicant: SHILPA MEDICARE LTD
Approved: Dec 12, 2016 | RLD: No | RS: No | Type: RX